FAERS Safety Report 15530208 (Version 3)
Quarter: 2019Q3

REPORT INFORMATION
  Report Type: Report from Study
  Country: TH (occurrence: TH)
  Receive Date: 20181018
  Receipt Date: 20190809
  Transmission Date: 20191004
  Serious: Yes (Life-Threatening, Hospitalization, Other)
  Sender: FDA-Public Use
  Company Number: PHHO2017TH010686

PATIENT
  Age: 60 Year
  Sex: Male
  Weight: 59 kg

DRUGS (102)
  1. COMPARATOR DOCETAXEL [Suspect]
     Active Substance: DOCETAXEL
     Indication: NASOPHARYNGEAL CANCER
     Dosage: 75 MG/M2, Q3W
     Route: 042
     Dates: start: 20170711
  2. MORPHINE [Concomitant]
     Active Substance: MORPHINE
     Indication: PAIN
     Dosage: 10 MG, PRN
     Route: 048
     Dates: start: 20170619, end: 20170719
  3. ONDANSETRON [Concomitant]
     Active Substance: ONDANSETRON
     Dosage: 8 MG, QD
     Route: 042
     Dates: start: 20171129, end: 20171129
  4. ONDANSETRON [Concomitant]
     Active Substance: ONDANSETRON
     Dosage: 8 MG, QD
     Route: 042
     Dates: start: 20171220, end: 20171220
  5. BETALGIL [Concomitant]
     Indication: DYSPEPSIA
     Dosage: 15 ML, QID
     Route: 048
     Dates: start: 20170816, end: 20170823
  6. DEXAMETHASONE. [Concomitant]
     Active Substance: DEXAMETHASONE
     Dosage: 8 MG, BID
     Route: 048
     Dates: start: 20171220, end: 20171223
  7. DEXAMETHASONE. [Concomitant]
     Active Substance: DEXAMETHASONE
     Dosage: 20 MG, QD
     Route: 042
     Dates: start: 20180403, end: 20180403
  8. CHLORAM [Concomitant]
     Dosage: QID
     Route: 061
     Dates: start: 20181212
  9. ACETYLCYSTEIN [Concomitant]
     Active Substance: ACETYLCYSTEINE
     Indication: COUGH
     Dosage: 200 MG, BID
     Route: 048
     Dates: start: 20180314, end: 20180612
  10. DEXTROMETHORPHAN [Concomitant]
     Active Substance: DEXTROMETHORPHAN
     Indication: NASOPHARYNGITIS
  11. SALINE [Concomitant]
     Active Substance: SODIUM CHLORIDE
     Indication: NASOPHARYNGEAL CANCER
     Dosage: UNK
     Route: 045
     Dates: start: 20180516
  12. ONDANSETRON [Concomitant]
     Active Substance: ONDANSETRON
     Indication: PREMEDICATION
     Dosage: 8 MG, ONCE/SINGLE
     Route: 042
     Dates: start: 20170711, end: 20170711
  13. ONDANSETRON [Concomitant]
     Active Substance: ONDANSETRON
     Dosage: 8 MG, BID
     Route: 042
     Dates: start: 20180515, end: 20180515
  14. GABAPENTIN. [Concomitant]
     Active Substance: GABAPENTIN
     Indication: PAIN
     Dosage: 300 MG, BID
     Route: 048
     Dates: start: 20170619, end: 20170619
  15. OMEPRAZOLE. [Concomitant]
     Active Substance: OMEPRAZOLE
     Indication: DYSPEPSIA
     Dosage: 20 MG, BID
     Route: 048
     Dates: start: 20170816, end: 20170823
  16. PEGFILGRASTIM [Concomitant]
     Active Substance: PEGFILGRASTIM
     Dosage: 6 MG, ONCE/SINGLE
     Route: 058
     Dates: start: 20180201, end: 20180201
  17. DEXAMETHASONE. [Concomitant]
     Active Substance: DEXAMETHASONE
     Dosage: 20 MG, ONCE/SINGLE
     Route: 042
     Dates: start: 20170928, end: 20170928
  18. CHLORAM [Concomitant]
     Indication: NASAL CONGESTION
     Dosage: QID
     Route: 061
     Dates: start: 20180823, end: 20181212
  19. ACETYLCYSTEIN [Concomitant]
     Active Substance: ACETYLCYSTEINE
     Dosage: 200 MG, BID
     Route: 048
     Dates: start: 20181031
  20. CHLORAMPHENICAL [Concomitant]
     Active Substance: CHLORAMPHENICOL
     Indication: ULCERATIVE KERATITIS
     Dosage: QD
     Route: 065
     Dates: start: 20171102, end: 20180125
  21. DURATEARS [Concomitant]
     Active Substance: MINERAL OIL EMULSION\PETROLATUM
     Dosage: QD
     Route: 061
     Dates: start: 20181101
  22. TARIVID OTIC [Concomitant]
     Indication: OTITIS MEDIA ACUTE
     Dosage: BID
     Route: 001
     Dates: start: 20170919, end: 20170920
  23. ONDANSETRON [Concomitant]
     Active Substance: ONDANSETRON
     Dosage: 8 MG, QD
     Route: 042
     Dates: start: 20180424, end: 20180424
  24. ONDANSETRON [Concomitant]
     Active Substance: ONDANSETRON
     Dosage: 8 MG, QD
     Route: 048
     Dates: start: 20170515, end: 20171018
  25. PEGFILGRASTIM [Concomitant]
     Active Substance: PEGFILGRASTIM
     Dosage: 6 MG, ONCE/SINGLE
     Route: 058
     Dates: start: 20171221, end: 20171221
  26. DEXAMETHASONE. [Concomitant]
     Active Substance: DEXAMETHASONE
     Dosage: 20 MG, QD
     Route: 048
     Dates: start: 20171129, end: 20171129
  27. DEXAMETHASONE. [Concomitant]
     Active Substance: DEXAMETHASONE
     Dosage: 20 MG, QD
     Route: 042
     Dates: start: 20171220, end: 20171220
  28. FUROSEMIDE. [Concomitant]
     Active Substance: FUROSEMIDE
     Indication: PROPHYLAXIS
     Dosage: 20 MG, ONCE/SINGLE
     Route: 042
     Dates: start: 20171019, end: 20171019
  29. VIGAMOX [Concomitant]
     Active Substance: MOXIFLOXACIN HYDROCHLORIDE
     Indication: ULCERATIVE KERATITIS
     Dosage: 1 DRP, UNK
     Route: 050
     Dates: start: 20171102, end: 20171112
  30. LORAZEPAM. [Concomitant]
     Active Substance: LORAZEPAM
     Indication: INSOMNIA
     Dosage: 0.5 MG, PRN
     Route: 048
     Dates: start: 20180424, end: 20180726
  31. G-CSF [Concomitant]
     Active Substance: GRANULOCYTE COLONY-STIMULATING FACTOR NOS
     Indication: PROPHYLAXIS
     Dosage: 6 MG, ONCE/SINGLE
     Route: 058
     Dates: start: 20171019, end: 20171019
  32. FERROUS FUMARATE [Concomitant]
     Active Substance: FERROUS FUMARATE
     Indication: ANAEMIA
     Dosage: 200 MG, TID
     Route: 048
     Dates: start: 20170613, end: 20170906
  33. ONDANSETRON [Concomitant]
     Active Substance: ONDANSETRON
     Dosage: 8 MG, BID
     Route: 048
     Dates: start: 20170728, end: 20170728
  34. ONDANSETRON [Concomitant]
     Active Substance: ONDANSETRON
     Dosage: 8 MG, QD
     Route: 042
     Dates: start: 20180110, end: 20180110
  35. ONDANSETRON [Concomitant]
     Active Substance: ONDANSETRON
     Dosage: 8 MG, BID
     Route: 048
     Dates: start: 20180110, end: 20180113
  36. ONDANSETRON [Concomitant]
     Active Substance: ONDANSETRON
     Dosage: 8 MG, QD
     Route: 042
     Dates: start: 20180131, end: 20180131
  37. OMEPRAZOLE. [Concomitant]
     Active Substance: OMEPRAZOLE
     Dosage: 40 MG, QD
     Route: 042
     Dates: start: 20171025, end: 20171025
  38. PEGFILGRASTIM [Concomitant]
     Active Substance: PEGFILGRASTIM
     Dosage: 6 MG, ONCE/SINGLE
     Route: 058
     Dates: start: 20180404, end: 20180404
  39. PEGFILGRASTIM [Concomitant]
     Active Substance: PEGFILGRASTIM
     Dosage: 6 MG, ONCE/SINGLE
     Route: 058
     Dates: start: 20180516, end: 20180516
  40. DEXAMETHASONE. [Concomitant]
     Active Substance: DEXAMETHASONE
     Indication: PREMEDICATION
     Dosage: 20 MG, ONCE/SINGLE
     Route: 042
     Dates: start: 20170711, end: 20170711
  41. DEXAMETHASONE. [Concomitant]
     Active Substance: DEXAMETHASONE
     Dosage: 8 MG, BID
     Route: 048
     Dates: start: 20170728, end: 20170728
  42. DEXAMETHASONE. [Concomitant]
     Active Substance: DEXAMETHASONE
     Dosage: 20 MG, QD
     Route: 042
     Dates: start: 20180131, end: 20180131
  43. DEXAMETHASONE. [Concomitant]
     Active Substance: DEXAMETHASONE
     Dosage: 20 MG, QD
     Route: 042
     Dates: start: 20180424, end: 20180424
  44. SENOKOT [Concomitant]
     Active Substance: SENNOSIDES
     Indication: PROPHYLAXIS
     Dosage: 2 DF, QD
     Route: 048
     Dates: start: 20170619, end: 20170717
  45. DURATEARS [Concomitant]
     Active Substance: MINERAL OIL EMULSION\PETROLATUM
     Indication: KERATOPATHY
     Dosage: QD
     Route: 061
     Dates: start: 20180823, end: 20181031
  46. NAPROXEN. [Concomitant]
     Active Substance: NAPROXEN
     Indication: MUSCULOSKELETAL PAIN
     Dosage: 250 MG, BID
     Route: 048
     Dates: start: 20180912, end: 20180914
  47. TARIVID OTIC [Concomitant]
     Dosage: BID
     Route: 001
     Dates: start: 20170927, end: 20171128
  48. ONDANSETRON [Concomitant]
     Active Substance: ONDANSETRON
     Dosage: 8 MG, ONCE/SINGLE
     Route: 048
     Dates: start: 20170928, end: 20170928
  49. ONDANSETRON [Concomitant]
     Active Substance: ONDANSETRON
     Dosage: 8 MG, BID
     Route: 048
     Dates: start: 20170928, end: 20171001
  50. ONDANSETRON [Concomitant]
     Active Substance: ONDANSETRON
     Dosage: 8 MG, BID
     Route: 048
     Dates: start: 20171129, end: 20171202
  51. ONDANSETRON [Concomitant]
     Active Substance: ONDANSETRON
     Dosage: 8 MG, QD
     Route: 042
     Dates: start: 20180403, end: 20180403
  52. ONDANSETRON [Concomitant]
     Active Substance: ONDANSETRON
     Dosage: 8 MG, BID
     Route: 048
     Dates: start: 20180403, end: 20180406
  53. MAGNESIUM SULPHATE [Concomitant]
     Active Substance: MAGNESIUM SULFATE
     Dosage: 4 ML, CONT
     Route: 042
     Dates: start: 20171029, end: 20171029
  54. PEGFILGRASTIM [Concomitant]
     Active Substance: PEGFILGRASTIM
     Indication: PROPHYLAXIS
     Dosage: 6 MG, ONCE/SINGLE
     Route: 058
     Dates: start: 20170907, end: 20170907
  55. AUGMENTIN [Concomitant]
     Active Substance: AMOXICILLIN\CLAVULANATE POTASSIUM
     Indication: OTITIS MEDIA ACUTE
     Dosage: 1 G, BID
     Route: 048
     Dates: start: 20170916, end: 20170922
  56. TROLAMINE SALICYLATE. [Concomitant]
     Active Substance: TROLAMINE SALICYLATE
     Indication: PAIN PROPHYLAXIS
     Dosage: UNK
     Route: 061
     Dates: start: 20170831
  57. DEXAMETHASONE. [Concomitant]
     Active Substance: DEXAMETHASONE
     Dosage: 20 MG, BID
     Route: 042
     Dates: start: 20170906, end: 20170906
  58. DEXAMETHASONE. [Concomitant]
     Active Substance: DEXAMETHASONE
     Dosage: 20 MG, BID
     Route: 042
     Dates: start: 20170928, end: 20171001
  59. DEXAMETHASONE. [Concomitant]
     Active Substance: DEXAMETHASONE
     Dosage: 20 MG, ONCE/SINGLE
     Route: 042
     Dates: start: 20171018, end: 20171018
  60. DEXAMETHASONE. [Concomitant]
     Active Substance: DEXAMETHASONE
     Dosage: 8 MG, BID
     Route: 048
     Dates: start: 20180131, end: 20180203
  61. DEXAMETHASONE. [Concomitant]
     Active Substance: DEXAMETHASONE
     Dosage: 8 MG, BID
     Route: 048
     Dates: start: 20180424, end: 20180427
  62. DEXAMETHASONE. [Concomitant]
     Active Substance: DEXAMETHASONE
     Dosage: 8 MG, BID
     Route: 048
     Dates: start: 20180515, end: 20180518
  63. SILVER NITRATE. [Concomitant]
     Active Substance: SILVER NITRATE
     Indication: INFECTION PROPHYLAXIS
     Dosage: BID
     Route: 061
     Dates: start: 20171028, end: 20171129
  64. VIGAMOX [Concomitant]
     Active Substance: MOXIFLOXACIN HYDROCHLORIDE
     Dosage: 1 DRP, QID
     Route: 050
     Dates: start: 20171113, end: 20171129
  65. PARACETAMOL [Concomitant]
     Active Substance: ACETAMINOPHEN
     Indication: PAIN
     Dosage: 1 DF, PRN
     Route: 048
     Dates: start: 20181113
  66. COMPARATOR DOCETAXEL [Suspect]
     Active Substance: DOCETAXEL
     Dosage: 60 MG/M2, Q3W
     Route: 042
     Dates: start: 20170816
  67. ONDANSETRON [Concomitant]
     Active Substance: ONDANSETRON
     Dosage: 8 MG, ONCE/SINGLE
     Route: 042
     Dates: start: 20170728
  68. ONDANSETRON [Concomitant]
     Active Substance: ONDANSETRON
     Dosage: 8 MG, ONCE/SINGLE
     Route: 042
     Dates: start: 20170906, end: 20170906
  69. ONDANSETRON [Concomitant]
     Active Substance: ONDANSETRON
     Dosage: 8 MG, QD
     Route: 048
     Dates: start: 20180424, end: 20180427
  70. BLENDERA MF [Concomitant]
     Indication: NUTRITIONAL SUPPLEMENTATION
     Dosage: 6 DF, PRN
     Route: 048
     Dates: start: 20170728
  71. OMEPRAZOLE. [Concomitant]
     Active Substance: OMEPRAZOLE
     Dosage: 20 MG, QD
     Route: 048
     Dates: start: 20171025, end: 20171025
  72. DEXAMETHASONE. [Concomitant]
     Active Substance: DEXAMETHASONE
     Dosage: 8 MG, BID
     Route: 048
     Dates: start: 20180110, end: 20180113
  73. DEXTROMETHORPHAN [Concomitant]
     Active Substance: DEXTROMETHORPHAN
     Indication: COUGH
     Dosage: 15 MG, BID
     Route: 048
     Dates: start: 20181017
  74. TEARS NATURAL FREE [Concomitant]
     Indication: ULCERATIVE KERATITIS
     Dosage: 1 DRP, UNK
     Route: 050
     Dates: start: 20171106, end: 20180124
  75. TEARS NATURAL FREE [Concomitant]
     Dosage: 1 DRP, UNK
     Route: 050
     Dates: start: 20180125, end: 20180516
  76. COMPARATOR DOCETAXEL [Suspect]
     Active Substance: DOCETAXEL
     Dosage: 48 MG/M2, Q3W
     Route: 042
     Dates: start: 20170928
  77. MORPHINE [Concomitant]
     Active Substance: MORPHINE
     Dosage: 10 MG, PRN
     Route: 048
     Dates: start: 20170920, end: 20171220
  78. ONDANSETRON [Concomitant]
     Active Substance: ONDANSETRON
     Dosage: 8 MG, ONCE/SINGLE
     Route: 048
     Dates: start: 20171018, end: 20171018
  79. PEGFILGRASTIM [Concomitant]
     Active Substance: PEGFILGRASTIM
     Dosage: 6 MG, ONCE/SINGLE
     Route: 058
     Dates: start: 20170929, end: 20170929
  80. PEGFILGRASTIM [Concomitant]
     Active Substance: PEGFILGRASTIM
     Dosage: 6 MG, ONCE/SINGLE
     Route: 058
     Dates: start: 20171130, end: 20171130
  81. PEGFILGRASTIM [Concomitant]
     Active Substance: PEGFILGRASTIM
     Dosage: 6 MG, ONCE/SINGLE
     Route: 058
     Dates: start: 20180111, end: 20180111
  82. PEGFILGRASTIM [Concomitant]
     Active Substance: PEGFILGRASTIM
     Dosage: 6 MG, ONCE/SINGLE
     Route: 058
     Dates: start: 20180425, end: 20180425
  83. AUGMENTIN [Concomitant]
     Active Substance: AMOXICILLIN\CLAVULANATE POTASSIUM
     Dosage: 1 G, BID
     Route: 048
     Dates: start: 20170927, end: 20171004
  84. DEXAMETHASONE. [Concomitant]
     Active Substance: DEXAMETHASONE
     Dosage: 8 MG, BID
     Route: 042
     Dates: start: 20170906, end: 20170909
  85. DEXAMETHASONE. [Concomitant]
     Active Substance: DEXAMETHASONE
     Dosage: 8 MG, BID
     Route: 042
     Dates: start: 20171018, end: 20171021
  86. VISIDIC [Concomitant]
     Indication: PROPHYLAXIS
     Dosage: QD
     Route: 061
     Dates: start: 20180125
  87. NO TREATMENT RECEIVED [Suspect]
     Active Substance: UNSPECIFIED INGREDIENT
     Indication: NASOPHARYNGEAL CANCER
     Dosage: NO TREATMENT
     Route: 065
  88. ONDANSETRON [Concomitant]
     Active Substance: ONDANSETRON
     Dosage: 8 MG, BID
     Route: 048
     Dates: start: 20170906, end: 20170909
  89. ONDANSETRON [Concomitant]
     Active Substance: ONDANSETRON
     Dosage: 8 MG, BID
     Route: 048
     Dates: start: 20171018, end: 20171021
  90. ONDANSETRON [Concomitant]
     Active Substance: ONDANSETRON
     Dosage: 8 MG, BID
     Route: 048
     Dates: start: 20171220, end: 20171223
  91. ONDANSETRON [Concomitant]
     Active Substance: ONDANSETRON
     Dosage: 8 MG, BID
     Route: 048
     Dates: start: 20180131, end: 20180203
  92. GABAPENTIN. [Concomitant]
     Active Substance: GABAPENTIN
     Dosage: 300 MG, BID
     Route: 048
     Dates: start: 20170728
  93. MAGNESIUM SULPHATE [Concomitant]
     Active Substance: MAGNESIUM SULFATE
     Indication: ELECTROLYTE SUBSTITUTION THERAPY
     Dosage: 1 DF, CONT
     Route: 042
     Dates: start: 20170827, end: 20170828
  94. PEGFILGRASTIM [Concomitant]
     Active Substance: PEGFILGRASTIM
     Dosage: 6 MG, ONCE/SINGLE
     Route: 058
     Dates: start: 20171019, end: 20171019
  95. AUGMENTIN [Concomitant]
     Active Substance: AMOXICILLIN\CLAVULANATE POTASSIUM
     Dosage: 1 G, BID
     Route: 048
     Dates: start: 20190108, end: 20190114
  96. DEXAMETHASONE. [Concomitant]
     Active Substance: DEXAMETHASONE
     Dosage: 20 MG, ONCE/SINGLE
     Route: 042
     Dates: start: 20170728
  97. DEXAMETHASONE. [Concomitant]
     Active Substance: DEXAMETHASONE
     Dosage: 8 MG, BID
     Route: 048
     Dates: start: 20171129, end: 20171202
  98. DEXAMETHASONE. [Concomitant]
     Active Substance: DEXAMETHASONE
     Dosage: 20 MG, QD
     Route: 042
     Dates: start: 20180110, end: 20180110
  99. DEXAMETHASONE. [Concomitant]
     Active Substance: DEXAMETHASONE
     Dosage: 8 MG, BID
     Route: 048
     Dates: start: 20180403, end: 20180406
  100. DEXAMETHASONE. [Concomitant]
     Active Substance: DEXAMETHASONE
     Dosage: 20 MG, QD
     Route: 042
     Dates: start: 20180515, end: 20180515
  101. ENSURE [Concomitant]
     Active Substance: AMINO ACIDS\DEXTROSE\ELECTROLYTES NOS\SOYBEAN OIL\VITAMINS
     Indication: SUPPLEMENTATION THERAPY
     Dosage: 56.4 G, PRN
     Route: 048
     Dates: start: 20180424
  102. VISIDIC [Concomitant]
     Dosage: BID
     Route: 061
     Dates: start: 20180517

REACTIONS (8)
  - Febrile neutropenia [Recovered/Resolved]
  - Conjunctivitis [Recovered/Resolved]
  - Hypokalaemia [Recovered/Resolved]
  - Febrile neutropenia [Recovered/Resolved]
  - Hypokalaemia [Recovered/Resolved]
  - Stomatitis [Recovered/Resolved]
  - Diarrhoea [Recovered/Resolved]
  - Diarrhoea [Recovered/Resolved]

NARRATIVE: CASE EVENT DATE: 20170715
